FAERS Safety Report 6943933-4 (Version None)
Quarter: 2010Q3

REPORT INFORMATION
  Report Type: 
  Country: None (occurrence: None)
  Receive Date: 20100826
  Receipt Date: 20100818
  Transmission Date: 20110219
  Serious: Yes (Hospitalization)
  Sender: FDA-Public Use
  Company Number: B0671771A

PATIENT
  Sex: Female

DRUGS (7)
  1. ZOFRAN [Suspect]
     Dosage: 80MG PER DAY
     Route: 065
     Dates: start: 20100813
  2. NITROGLYCERIN [Concomitant]
  3. SIMVASTATIN [Concomitant]
     Route: 048
  4. MEDROL [Concomitant]
  5. CENTYL MED KALIUMCHLORID [Concomitant]
  6. INDERAL RETARD [Concomitant]
     Dosage: 80MG PER DAY
     Dates: start: 20070101
  7. ALBYL-E [Concomitant]
     Dosage: 75MG PER DAY
     Dates: start: 20070101

REACTIONS (2)
  - ATRIAL FIBRILLATION [None]
  - CHEST PAIN [None]
